FAERS Safety Report 11343984 (Version 1)
Quarter: 2015Q3

REPORT INFORMATION
  Report Type: Spontaneous
  Country: US (occurrence: None)
  Receive Date: 20150804
  Receipt Date: 20150804
  Transmission Date: 20151125
  Serious: No
  Sender: FDA-Public Use
  Company Number: None

PATIENT
  Age: 71 Year
  Sex: Male

DRUGS (1)
  1. STELARA [Suspect]
     Active Substance: USTEKINUMAB
     Dosage: 90 MG, Q 3 MONTHS
     Route: 058
     Dates: start: 20150401

REACTIONS (2)
  - Disorientation [None]
  - Claustrophobia [None]

NARRATIVE: CASE EVENT DATE: 20150730
